FAERS Safety Report 7093667-3 (Version None)
Quarter: 2010Q4

REPORT INFORMATION
  Report Type: 
  Country: None (occurrence: None)
  Receive Date: 20101110
  Receipt Date: 20101101
  Transmission Date: 20110411
  Serious: Yes (Hospitalization, Other)
  Sender: FDA-Public Use
  Company Number: US-US-EMD SERONO, INC.-7024372

PATIENT
  Sex: Female
  Weight: 81 kg

DRUGS (9)
  1. REBIF [Suspect]
     Indication: MULTIPLE SCLEROSIS
     Route: 058
     Dates: start: 20080101
  2. LISINOPRIL [Suspect]
     Indication: HYPERTENSION
     Dates: end: 20101011
  3. HYDROCHLOROTHIAZIDE [Suspect]
     Indication: HYPERTENSION
     Dates: end: 20101011
  4. BACLOFEN [Concomitant]
     Indication: MUSCLE SPASMS
  5. ALBUTEROL [Concomitant]
     Indication: ASTHMA
  6. NAPROSYN [Concomitant]
     Indication: ARTHRITIS
  7. TRAZODONE [Concomitant]
     Indication: INSOMNIA
  8. PROVIGIL [Concomitant]
     Indication: FATIGUE
     Dates: start: 20040101
  9. CITALOPRAM HYDROBROMIDE [Concomitant]
     Indication: DEPRESSION
     Dates: start: 20051215

REACTIONS (5)
  - DEHYDRATION [None]
  - EMOTIONAL DISTRESS [None]
  - FALL [None]
  - HYPERCAPNIA [None]
  - ORTHOSTATIC HYPOTENSION [None]
